FAERS Safety Report 7194405-6 (Version None)
Quarter: 2010Q4

REPORT INFORMATION
  Report Type: 
  Country: None (occurrence: None)
  Receive Date: 20101124
  Receipt Date: 20100908
  Transmission Date: 20110411
  Serious: Yes (Other)
  Sender: FDA-Public Use
  Company Number: 014070

PATIENT
  Age: 55 Year
  Sex: Female
  Weight: 47.6 kg

DRUGS (1)
  1. LACOSAMIDE [Suspect]
     Indication: CONVULSION
     Dosage: (ORAL)
     Route: 048
     Dates: start: 20100602

REACTIONS (7)
  - ASTHENIA [None]
  - BLINDNESS [None]
  - JAUNDICE [None]
  - LETHARGY [None]
  - PHOTOPHOBIA [None]
  - SUICIDAL IDEATION [None]
  - SYNCOPE [None]
